FAERS Safety Report 9129048 (Version 4)
Quarter: 2013Q3

REPORT INFORMATION
  Report Type: Spontaneous
  Country: US (occurrence: US)
  Receive Date: 20130228
  Receipt Date: 20130913
  Transmission Date: 20140515
  Serious: Yes (Congenital Anomaly)
  Sender: FDA-Public Use
  Company Number: US-JNJFOC-20130215790

PATIENT
  Age: 0 Day
  Sex: Male

DRUGS (7)
  1. TOPAMAX [Suspect]
     Indication: FOETAL EXPOSURE DURING PREGNANCY
     Route: 064
     Dates: start: 201012, end: 201108
  2. RANITIDINE [Suspect]
     Indication: FOETAL EXPOSURE DURING PREGNANCY
     Route: 064
  3. MISOPROSTOL [Suspect]
     Indication: FOETAL EXPOSURE DURING PREGNANCY
     Route: 064
  4. DOXYCYCLINE [Suspect]
     Indication: FOETAL EXPOSURE DURING PREGNANCY
     Route: 064
  5. FERROUS SULFATE [Concomitant]
     Indication: FOETAL EXPOSURE DURING PREGNANCY
     Route: 064
  6. FOLATE [Concomitant]
     Indication: FOETAL EXPOSURE DURING PREGNANCY
     Route: 064
  7. PRENATAL VITAMINS [Concomitant]
     Indication: FOETAL EXPOSURE DURING PREGNANCY
     Route: 064

REACTIONS (6)
  - Meningomyelocele [Unknown]
  - Congenital osteodystrophy [Unknown]
  - Scoliosis [Unknown]
  - Pyelocaliectasis [Unknown]
  - Neonatal tachypnoea [Recovered/Resolved]
  - Emotional distress [Unknown]
